FAERS Safety Report 7524463-8 (Version None)
Quarter: 2011Q2

REPORT INFORMATION
  Report Type: 
  Country: None (occurrence: None)
  Receive Date: 20110606
  Receipt Date: 20110524
  Transmission Date: 20111010
  Serious: Yes (Other)
  Sender: FDA-Public Use
  Company Number: US-JNJFOC-20110511908

PATIENT
  Sex: Female
  Weight: 75.75 kg

DRUGS (9)
  1. ESTRADIOL [Concomitant]
     Indication: HORMONE REPLACEMENT THERAPY
     Route: 048
  2. WELLBUTRIN [Concomitant]
     Indication: MIGRAINE
     Route: 048
  3. FLEXERIL [Concomitant]
     Indication: FIBROMYALGIA
     Route: 048
  4. PLAVIX [Concomitant]
     Indication: MIGRAINE
     Route: 048
     Dates: start: 20080101
  5. METOPROLOL TARTRATE [Concomitant]
     Indication: CARDIAC DISORDER
     Route: 048
     Dates: start: 20080101
  6. ASPIRIN [Concomitant]
     Indication: MIGRAINE
     Route: 048
  7. TOPAMAX [Suspect]
     Indication: MIGRAINE
     Dosage: 50MG+50MG+50MG+50MG/ FOUR IN THE PM
     Route: 048
     Dates: start: 20080101
  8. TOPAMAX [Suspect]
     Route: 048
     Dates: start: 20080101
  9. METOPROLOL TARTRATE [Concomitant]
     Indication: MIGRAINE
     Route: 048
     Dates: start: 20080101

REACTIONS (4)
  - TREATMENT NONCOMPLIANCE [None]
  - PRODUCT QUALITY ISSUE [None]
  - MALAISE [None]
  - MEMORY IMPAIRMENT [None]
